FAERS Safety Report 12320059 (Version 1)
Quarter: 2016Q2

REPORT INFORMATION
  Report Type: Other
  Country: GB (occurrence: GB)
  Receive Date: 20160429
  Receipt Date: 20160429
  Transmission Date: 20160815
  Serious: Yes (Other)
  Sender: FDA-Public Use
  Company Number: GB-MYLANLABS-2016M1017523

PATIENT

DRUGS (4)
  1. TRIUMEQ [Suspect]
     Active Substance: ABACAVIR SULFATE\DOLUTEGRAVIR SODIUM\LAMIVUDINE
     Indication: HIV TEST POSITIVE
     Dosage: 1 DF, QD (TRIUMEQ = ABACAVIR 600MG, LAMIVUDINE 300MG, DOLUTEGRAVIR 50MG.)
     Route: 048
     Dates: start: 20160324, end: 20160407
  2. AZITHROMYCIN ANHYDROUS. [Suspect]
     Active Substance: AZITHROMYCIN ANHYDROUS
     Dosage: 1 G, UNK (STAT DOSE.)
     Route: 048
     Dates: start: 20160324
  3. SANATOGEN                          /00481701/ [Concomitant]
     Dosage: 1 DF, QD
  4. COLECALCIFEROL [Concomitant]
     Active Substance: CHOLECALCIFEROL
     Dosage: 800 IU, QD
     Dates: start: 20160324

REACTIONS (7)
  - Influenza like illness [Recovering/Resolving]
  - Cough [Recovering/Resolving]
  - Dermatitis allergic [Recovering/Resolving]
  - Arthralgia [Recovering/Resolving]
  - Myalgia [Recovering/Resolving]
  - Headache [Recovering/Resolving]
  - Chills [Recovering/Resolving]

NARRATIVE: CASE EVENT DATE: 20160326
